FAERS Safety Report 25039257 (Version 2)
Quarter: 2025Q1

REPORT INFORMATION
  Report Type: Spontaneous
  Country: US (occurrence: US)
  Receive Date: 20250305
  Receipt Date: 20250317
  Transmission Date: 20250409
  Serious: No
  Sender: LUPIN
  Company Number: US-LUPIN PHARMACEUTICALS INC.-2025-01139

PATIENT
  Age: 40 Year
  Weight: 45.351 kg

DRUGS (1)
  1. LEVOTHYROXINE SODIUM [Suspect]
     Active Substance: LEVOTHYROXINE SODIUM
     Indication: Hypothyroidism

REACTIONS (4)
  - Oropharyngeal pain [Unknown]
  - Diarrhoea [Unknown]
  - Nasal congestion [Unknown]
  - Recalled product administered [Unknown]
